FAERS Safety Report 4474886-9 (Version None)
Quarter: 2004Q4

REPORT INFORMATION
  Report Type: 
  Country: None (occurrence: None)
  Receive Date: 20041012
  Receipt Date: 20040927
  Transmission Date: 20050328
  Serious: Yes (Death)
  Sender: FDA-Public Use
  Company Number: JP-2004-032549

PATIENT
  Age: 94 Year
  Sex: Female
  Weight: 49 kg

DRUGS (5)
  1. FLUDARA [Suspect]
     Indication: CHRONIC LYMPHOCYTIC LEUKAEMIA
     Dosage: SEE IMAGE
     Route: 042
     Dates: start: 20020316, end: 20020316
  2. FLUDARA [Suspect]
     Indication: CHRONIC LYMPHOCYTIC LEUKAEMIA
     Dosage: SEE IMAGE
     Route: 042
     Dates: start: 20020317, end: 20020318
  3. FLUDARA [Suspect]
     Indication: CHRONIC LYMPHOCYTIC LEUKAEMIA
     Dosage: SEE IMAGE
     Route: 042
     Dates: start: 20020426, end: 20020427
  4. FLUDARA [Suspect]
     Indication: CHRONIC LYMPHOCYTIC LEUKAEMIA
     Dosage: SEE IMAGE
     Route: 042
     Dates: start: 20020507, end: 20020508
  5. SOLU-MEDROL [Concomitant]

REACTIONS (3)
  - CARDIAC DEATH [None]
  - CHRONIC LYMPHOCYTIC LEUKAEMIA [None]
  - DISEASE RECURRENCE [None]
